FAERS Safety Report 8383013-7 (Version None)
Quarter: 2012Q2

REPORT INFORMATION
  Report Type: 
  Country: None (occurrence: None)
  Receive Date: 20120524
  Receipt Date: 20120518
  Transmission Date: 20120825
  Serious: Yes (Other)
  Sender: FDA-Public Use
  Company Number: PHEH2012US010469

PATIENT
  Sex: Female

DRUGS (2)
  1. TEKTURNA [Suspect]
     Dosage: 150 MG, UNK
  2. DIOVAN [Suspect]
     Dosage: 320 MG, UNK

REACTIONS (2)
  - BREAST CANCER [None]
  - ARTHRITIS [None]
